FAERS Safety Report 6746780-1 (Version None)
Quarter: 2010Q2

REPORT INFORMATION
  Report Type: 
  Country: None (occurrence: None)
  Receive Date: 20100528
  Receipt Date: 20091116
  Transmission Date: 20101027
  Serious: No
  Sender: FDA-Public Use
  Company Number: A0811610A

PATIENT
  Age: 54 Year
  Sex: Female

DRUGS (22)
  1. VENTOLIN [Suspect]
     Indication: RESPIRATORY DISORDER
     Dosage: 2PUFF EIGHT TIMES PER DAY
     Route: 055
     Dates: start: 20080101
  2. PROGRAF [Concomitant]
  3. CELLCEPT [Concomitant]
  4. BACTRIM [Concomitant]
  5. PREDNISONE TAB [Concomitant]
  6. DILTIAZEM HCL [Concomitant]
  7. RAPAMUNE [Concomitant]
  8. PROTONIX [Concomitant]
  9. MAGNESIUM OXIDE [Concomitant]
  10. UNKNOWN MEDICATION [Concomitant]
  11. LASIX [Concomitant]
  12. TRAZODONE HCL [Concomitant]
  13. VYTORIN [Concomitant]
  14. SPIRONOLACTONE [Concomitant]
  15. ACYCLOVIR [Concomitant]
  16. CLONAZEPAM [Concomitant]
  17. MULTI-VITAMIN [Concomitant]
  18. FISH OIL [Concomitant]
  19. VITAMIN D [Concomitant]
  20. VITAMIN B COMPLEX TAB [Concomitant]
  21. CORAL CALCIUM [Concomitant]
  22. HYDROCODONE [Concomitant]

REACTIONS (3)
  - CHOKING SENSATION [None]
  - DRUG INEFFECTIVE [None]
  - PRODUCT QUALITY ISSUE [None]
